FAERS Safety Report 5133015-9 (Version None)
Quarter: 2006Q4

REPORT INFORMATION
  Report Type: 
  Country: None (occurrence: None)
  Receive Date: 20061017
  Receipt Date: 20060922
  Transmission Date: 20070319
  Serious: Yes (Death)
  Sender: FDA-Public Use
  Company Number: PR/970402/155

PATIENT
  Age: 35 Year
  Sex: Male

DRUGS (4)
  1. SUBUTEX [Suspect]
     Indication: DEPENDENCE
     Dosage: SUBLINGUAL
     Route: 060
  2. DELORAZEPAM         (DELORAZEPAM) [Suspect]
     Indication: DRUG USE FOR UNKNOWN INDICATION
  3. CLORAZEPATE DIPOTASSIUM [Suspect]
     Indication: DRUG USE FOR UNKNOWN INDICATION
  4. ETHANOL     (ETHANOL) [Suspect]
     Indication: DRUG USE FOR UNKNOWN INDICATION

REACTIONS (3)
  - ASPHYXIA [None]
  - DRUG SCREEN POSITIVE [None]
  - PULMONARY OEDEMA [None]
